FAERS Safety Report 5602109-3 (Version None)
Quarter: 2008Q1

REPORT INFORMATION
  Report Type: 
  Country: None (occurrence: None)
  Receive Date: 20080125
  Receipt Date: 20080114
  Transmission Date: 20080703
  Serious: Yes (Other)
  Sender: FDA-Public Use
  Company Number: US-JNJFOC-20080103551

PATIENT
  Sex: Female
  Weight: 86.36 kg

DRUGS (6)
  1. TYLENOL (CAPLET) [Suspect]
  2. TYLENOL (CAPLET) [Suspect]
     Indication: FIBROMYALGIA
  3. TEGRETOL [Suspect]
     Indication: FIBROMYALGIA
  4. LYRICA [Suspect]
     Indication: FIBROMYALGIA
  5. AVINZA [Concomitant]
  6. KLONOPIN [Concomitant]

REACTIONS (5)
  - CRYING [None]
  - DEPRESSION [None]
  - HEADACHE [None]
  - MONOPLEGIA [None]
  - URTICARIA [None]
